FAERS Safety Report 25066045 (Version 2)
Quarter: 2025Q1

REPORT INFORMATION
  Report Type: Report from Study
  Country: US (occurrence: US)
  Receive Date: 20250312
  Receipt Date: 20250331
  Transmission Date: 20250409
  Serious: No
  Sender: ABBVIE
  Company Number: US-ABBVIE-6164330

PATIENT
  Age: 40 Year
  Sex: Male
  Weight: 76.203 kg

DRUGS (3)
  1. RINVOQ [Suspect]
     Active Substance: UPADACITINIB
     Indication: Crohn^s disease
     Dosage: 45 MILLIGRAM
     Route: 048
     Dates: start: 20241127, end: 202412
  2. RINVOQ [Suspect]
     Active Substance: UPADACITINIB
     Indication: Crohn^s disease
     Dosage: 30 MILLIGRAM
     Route: 048
     Dates: start: 202412
  3. IRON [Concomitant]
     Active Substance: IRON
     Indication: Product used for unknown indication

REACTIONS (3)
  - Rash papular [Recovering/Resolving]
  - Exposure to communicable disease [Unknown]
  - Folliculitis [Recovered/Resolved]

NARRATIVE: CASE EVENT DATE: 20241101
